FAERS Safety Report 9185731 (Version 2)
Quarter: 2013Q3

REPORT INFORMATION
  Report Type: Spontaneous
  Country: US (occurrence: None)
  Receive Date: 20120628
  Receipt Date: 20130724
  Transmission Date: 20140515
  Serious: Yes (Other)
  Sender: FDA-Public Use
  Company Number: PHEH2011US01840

PATIENT
  Age: 79 Year
  Sex: Female

DRUGS (6)
  1. RECLAST [Suspect]
     Dosage: 5MG ONCE PER YEAR
     Route: 042
  2. CALCIUM (CALCIUM) [Concomitant]
  3. ACIPHEX (RABEPRAZOLE SODIUM) [Concomitant]
  4. VITAMIN D (ERGOCALCIFEROL) [Concomitant]
  5. OMEPRAZOLE (OMEPRAZOLE) [Concomitant]
  6. MAGNESIUM (MAGNESIUM) [Concomitant]

REACTIONS (7)
  - Osteoporosis [None]
  - Arthralgia [None]
  - Joint stiffness [None]
  - Musculoskeletal stiffness [None]
  - Gait disturbance [None]
  - Headache [None]
  - Influenza like illness [None]
